FAERS Safety Report 10696680 (Version 1)
Quarter: 2015Q1

REPORT INFORMATION
  Report Type: Spontaneous
  Country: KR (occurrence: KR)
  Receive Date: 20150107
  Receipt Date: 20150107
  Transmission Date: 20150721
  Serious: Yes (Other)
  Sender: FDA-Public Use
  Company Number: PHHY2014KR170442

PATIENT
  Age: 79 Year
  Sex: Male

DRUGS (2)
  1. TRIAMCINOLONE [Suspect]
     Active Substance: TRIAMCINOLONE
     Indication: BACK PAIN
     Dosage: 4 DF, UNK
     Route: 008
  2. DEXAMETHASONE. [Suspect]
     Active Substance: DEXAMETHASONE
     Indication: BACK PAIN
     Dosage: 4 DF, UNK
     Route: 008

REACTIONS (4)
  - Detachment of retinal pigment epithelium [Unknown]
  - Visual acuity reduced [Unknown]
  - Chorioretinopathy [Unknown]
  - Retinal pigment epithelial tear [Unknown]
